FAERS Safety Report 21282775 (Version 1)
Quarter: 2022Q3

REPORT INFORMATION
  Report Type: Report from Study
  Country: MX (occurrence: MX)
  Receive Date: 20220901
  Receipt Date: 20220901
  Transmission Date: 20221027
  Serious: Yes (Other)
  Sender: FDA-Public Use
  Company Number: MX-NOVARTISPH-NVSC2022MX196422

PATIENT
  Sex: Female
  Weight: 60 kg

DRUGS (1)
  1. HYDROCHLOROTHIAZIDE\VALSARTAN [Suspect]
     Active Substance: HYDROCHLOROTHIAZIDE\VALSARTAN
     Indication: Blood pressure abnormal
     Dosage: 1 DOSAGE FORM, QD,(STARTED 3 MONTHS AGO)
     Route: 048

REACTIONS (2)
  - Cataract [Unknown]
  - Visual impairment [Unknown]
